FAERS Safety Report 4524037-7 (Version None)
Quarter: 2004Q4

REPORT INFORMATION
  Report Type: 
  Country: None (occurrence: None)
  Receive Date: 20041209
  Receipt Date: 20041123
  Transmission Date: 20050328
  Serious: Yes (Other)
  Sender: FDA-Public Use
  Company Number: S04-CAN-06638-01

PATIENT
  Age: 80 Year
  Sex: Female

DRUGS (9)
  1. EBIXA (MEMANTINE) [Suspect]
     Indication: DEMENTIA ALZHEIMER'S TYPE
     Dosage: 5 MG QD PO
     Route: 048
     Dates: start: 20040901
  2. EBIXA (MEMANTINE) [Suspect]
     Indication: DEMENTIA ALZHEIMER'S TYPE
     Dosage: 5 MG BID PO
     Route: 048
  3. EBIXA (MEMANTINE) [Suspect]
     Indication: DEMENTIA ALZHEIMER'S TYPE
     Dosage: 15 MG QD PO
     Route: 048
     Dates: end: 20041016
  4. GALANTAMINE [Concomitant]
  5. METFORMIN HCL [Concomitant]
  6. GLYBURIDE [Concomitant]
  7. ENALAPRIL [Concomitant]
  8. ALLOPURINOL [Concomitant]
  9. TAMOXIFEN CITRATE [Concomitant]

REACTIONS (3)
  - COLONIC POLYP [None]
  - RECTAL ADENOMA [None]
  - RECTAL HAEMORRHAGE [None]
